FAERS Safety Report 4432569-5 (Version None)
Quarter: 2004Q3

REPORT INFORMATION
  Report Type: 
  Country: None (occurrence: None)
  Receive Date: 20040816
  Receipt Date: 20040728
  Transmission Date: 20050211
  Serious: Yes (Death)
  Sender: FDA-Public Use
  Company Number: 238376

PATIENT
  Sex: Male

DRUGS (1)
  1. NOVOSEVEN [Suspect]

REACTIONS (1)
  - CONCOMITANT DISEASE PROGRESSION [None]
